FAERS Safety Report 21624150 (Version 2)
Quarter: 2022Q4

REPORT INFORMATION
  Report Type: Report from Study
  Country: IN (occurrence: IN)
  Receive Date: 20221121
  Receipt Date: 20221207
  Transmission Date: 20230113
  Serious: Yes (Other)
  Sender: FDA-Public Use
  Company Number: IN-TAKEDA-2022TUS086651

PATIENT
  Age: 44 Year
  Sex: Male
  Weight: 55 kg

DRUGS (5)
  1. VEDOLIZUMAB [Suspect]
     Active Substance: VEDOLIZUMAB
     Indication: Crohn^s disease
     Dosage: 300 MILLIGRAM
     Route: 042
     Dates: start: 20220705, end: 20221115
  2. MESALAMINE [Concomitant]
     Active Substance: MESALAMINE
     Indication: Inflammatory bowel disease
     Dosage: UNK UNK, QD
     Dates: start: 20221011
  3. VITAMIN D [Concomitant]
     Active Substance: VITAMIN D NOS
     Indication: Supplementation therapy
     Dosage: 500 MILLIGRAM, QD
     Route: 048
     Dates: start: 20221011
  4. ROCALTROL [Concomitant]
     Active Substance: CALCITRIOL
     Indication: Supplementation therapy
     Dosage: UNK UNK, QD
     Route: 048
     Dates: start: 20221011
  5. RIFAXIMIN [Concomitant]
     Active Substance: RIFAXIMIN
     Indication: Antibiotic therapy
     Dosage: UNK UNK, QD
     Route: 048
     Dates: start: 20221011

REACTIONS (1)
  - Tuberculous pleurisy [Not Recovered/Not Resolved]

NARRATIVE: CASE EVENT DATE: 20221115
